FAERS Safety Report 5379127-6 (Version None)
Quarter: 2007Q3

REPORT INFORMATION
  Report Type: 
  Country: None (occurrence: None)
  Receive Date: 20070705
  Receipt Date: 20070622
  Transmission Date: 20080115
  Serious: Yes (Death)
  Sender: FDA-Public Use
  Company Number: GB-ELI_LILLY_AND_COMPANY-GB200706005142

PATIENT
  Age: 78 Year
  Sex: Female

DRUGS (2)
  1. CYMBALTA [Suspect]
     Indication: DEPRESSION
     Dosage: 60 MG, UNK
     Dates: start: 20070403
  2. ANTIPSYCHOTICS [Concomitant]

REACTIONS (2)
  - HYPOMANIA [None]
  - MYOCARDIAL INFARCTION [None]
